FAERS Safety Report 7789199-7 (Version None)
Quarter: 2011Q3

REPORT INFORMATION
  Report Type: 
  Country: None (occurrence: None)
  Receive Date: 20110930
  Receipt Date: 20110926
  Transmission Date: 20111222
  Serious: Yes (Disabling)
  Sender: FDA-Public Use
  Company Number: FR-PFIZER INC-2011217113

PATIENT
  Age: 56 Year
  Sex: Female
  Weight: 58 kg

DRUGS (4)
  1. OESTRODOSE [Concomitant]
  2. VFEND [Suspect]
     Indication: BRONCHOPULMONARY ASPERGILLOSIS
     Dosage: 250 MG, 2X/DAY
     Route: 048
     Dates: start: 20110209, end: 20110623
  3. PROGESTERONE [Concomitant]
  4. FORADIL [Concomitant]

REACTIONS (4)
  - NEUROPATHY PERIPHERAL [None]
  - FALL [None]
  - PARAESTHESIA [None]
  - ANAESTHESIA [None]
